FAERS Safety Report 18489415 (Version 2)
Quarter: 2020Q4

REPORT INFORMATION
  Report Type: Spontaneous
  Country: US (occurrence: US)
  Receive Date: 20201111
  Receipt Date: 20201203
  Transmission Date: 20210114
  Serious: Yes (Hospitalization)
  Sender: FDA-Public Use
  Company Number: US-GW PHARMA-202011USGW03824

PATIENT

DRUGS (1)
  1. EPIDIOLEX [Suspect]
     Active Substance: CANNABIDIOL
     Indication: EPILEPSY
     Dosage: 700 MILLIGRAM, BID
     Dates: start: 201906

REACTIONS (5)
  - Anaemia [Unknown]
  - Increased bronchial secretion [Recovering/Resolving]
  - Mental status changes [Recovered/Resolved]
  - Pneumonia [Recovering/Resolving]
  - Chronic sinusitis [Unknown]

NARRATIVE: CASE EVENT DATE: 20200918
